FAERS Safety Report 9462526 (Version 1)
Quarter: 2013Q3

REPORT INFORMATION
  Report Type: Spontaneous
  Country: US (occurrence: US)
  Receive Date: 20130816
  Receipt Date: 20130816
  Transmission Date: 20140515
  Serious: Yes (Death)
  Sender: FDA-Public Use
  Company Number: US-ROCHE-1262450

PATIENT
  Sex: Female

DRUGS (9)
  1. XELODA [Suspect]
     Indication: BREAST CANCER
     Dosage: TWICE DAILY FOR 7 DAYS THEN OFF FOR 7 DAYS AND THEN REPEAT
     Route: 048
     Dates: start: 20130719
  2. COUMADIN [Concomitant]
     Route: 048
  3. ZITHROMAX [Concomitant]
     Route: 048
     Dates: end: 20130128
  4. ACCUPRIL [Concomitant]
     Route: 048
     Dates: end: 20130128
  5. CHERATUSSIN (UNK INGREDIENTS) [Concomitant]
     Dosage: AS REQUIRED, SYRUP, 100-1015
     Route: 048
     Dates: end: 20130128
  6. DIOVAN [Concomitant]
     Route: 048
     Dates: end: 20130128
  7. CRESTOR [Concomitant]
     Route: 065
     Dates: start: 20130128
  8. QUINAPRIL [Concomitant]
     Route: 065
     Dates: start: 20130718
  9. PHENAZOPYRIDINE [Concomitant]
     Route: 065
     Dates: start: 20130719

REACTIONS (1)
  - Death [Fatal]
